FAERS Safety Report 5049297-8 (Version None)
Quarter: 2006Q3

REPORT INFORMATION
  Report Type: 
  Country: None (occurrence: None)
  Receive Date: 20060712
  Receipt Date: 20060531
  Transmission Date: 20061208
  Serious: Yes (Hospitalization)
  Sender: FDA-Public Use
  Company Number: 2006AP02797

PATIENT
  Age: 25255 Day
  Sex: Female

DRUGS (5)
  1. IRESSA [Suspect]
     Indication: LUNG ADENOCARCINOMA
     Route: 048
     Dates: start: 20060503, end: 20060511
  2. DEPAKENE [Concomitant]
     Route: 048
     Dates: start: 20060412
  3. ULCERMIN [Concomitant]
     Route: 048
     Dates: start: 20060421
  4. GASTER [Concomitant]
     Route: 048
     Dates: start: 20060421
  5. RADIOTHERAPY [Concomitant]
     Dosage: 31 GRAYS TO WHOLE BRAIN
     Dates: start: 20060403, end: 20060419

REACTIONS (1)
  - BLOOD ALKALINE PHOSPHATASE INCREASED [None]
